FAERS Safety Report 10673101 (Version 2)
Quarter: 2015Q1

REPORT INFORMATION
  Report Type: Spontaneous
  Country: US (occurrence: US)
  Receive Date: 20141224
  Receipt Date: 20150114
  Transmission Date: 20150720
  Serious: No
  Sender: FDA-Public Use
  Company Number: US-009507513-1412USA010488

PATIENT
  Sex: Female

DRUGS (1)
  1. DULERA [Suspect]
     Active Substance: FORMOTEROL FUMARATE DIHYDRATE\MOMETASONE FUROATE
     Dosage: 100/5 MCG- TWO SPRAYS TWICE A DAY
     Route: 055

REACTIONS (5)
  - Malaise [Unknown]
  - Dyspnoea [Unknown]
  - No adverse event [Unknown]
  - Wrong technique in drug usage process [Unknown]
  - Product quality issue [Unknown]
